FAERS Safety Report 5800851-2 (Version None)
Quarter: 2008Q3

REPORT INFORMATION
  Report Type: 
  Country: None (occurrence: None)
  Receive Date: 20080703
  Receipt Date: 20080626
  Transmission Date: 20090109
  Serious: Yes (Hospitalization, Other)
  Sender: FDA-Public Use
  Company Number: US-ABBOTT-08P-163-0459991-00

PATIENT
  Sex: Female
  Weight: 70.37 kg

DRUGS (10)
  1. HUMIRA [Suspect]
     Indication: RHEUMATOID ARTHRITIS
     Route: 058
     Dates: start: 20050101, end: 20070901
  2. HUMIRA [Suspect]
     Route: 058
     Dates: start: 20071101, end: 20080601
  3. HUMIRA [Suspect]
     Route: 058
     Dates: start: 20080601
  4. HUMIRA [Suspect]
     Dates: start: 20070501
  5. AZULFADINE [Concomitant]
     Indication: IRRITABLE BOWEL SYNDROME
     Route: 048
     Dates: start: 20070501
  6. PREDNISONE 50MG TAB [Concomitant]
     Indication: RHEUMATOID ARTHRITIS
     Route: 048
     Dates: start: 20000101
  7. LEVOTHYROXINE SODIUM [Concomitant]
     Indication: HYPOTHYROIDISM
     Route: 048
     Dates: start: 19980101
  8. TRAMADOL HCL [Concomitant]
     Indication: PAIN
     Route: 048
     Dates: start: 20070101
  9. METHOTREXATE [Concomitant]
     Indication: DRUG USE FOR UNKNOWN INDICATION
     Route: 048
     Dates: start: 20070501
  10. MILK THISTLE [Concomitant]
     Indication: LIVER DISORDER

REACTIONS (14)
  - ANIMAL BITE [None]
  - ARTHRALGIA [None]
  - BUNION [None]
  - DRUG INEFFECTIVE [None]
  - FOOT DEFORMITY [None]
  - HEPATITIS [None]
  - JOINT INJURY [None]
  - JOINT SWELLING [None]
  - KNEE ARTHROPLASTY [None]
  - OEDEMA PERIPHERAL [None]
  - OSTEOARTHRITIS [None]
  - PAIN [None]
  - PAIN IN EXTREMITY [None]
  - RHEUMATOID NODULE [None]
